FAERS Safety Report 16199462 (Version 3)
Quarter: 2019Q2

REPORT INFORMATION
  Report Type: Report from Study
  Country: US (occurrence: US)
  Receive Date: 20190415
  Receipt Date: 20190620
  Transmission Date: 20190711
  Serious: Yes (Hospitalization)
  Sender: FDA-Public Use
  Company Number: US-ACTELION-A-US2017-158903

PATIENT
  Age: 48 Year
  Sex: Female

DRUGS (28)
  1. OPSUMIT [Suspect]
     Active Substance: MACITENTAN
     Indication: PULMONARY ARTERIAL HYPERTENSION
     Dosage: 10 MG, QD
     Route: 048
     Dates: start: 20170817, end: 20190319
  2. ISOSORBIDE. [Concomitant]
     Active Substance: ISOSORBIDE
  3. ALBUTEROL. [Concomitant]
     Active Substance: ALBUTEROL
  4. CHONDROITIN SULFATE [Concomitant]
     Active Substance: CHONDROITIN SULFATE (BOVINE)
  5. PLAVIX [Concomitant]
     Active Substance: CLOPIDOGREL BISULFATE
  6. VITAMIN B12 [Concomitant]
     Active Substance: CYANOCOBALAMIN
  7. CALTRATE 600+D [Concomitant]
  8. LANTUS [Concomitant]
     Active Substance: INSULIN GLARGINE
  9. HUMALOG [Concomitant]
     Active Substance: INSULIN LISPRO
  10. VENTOLIN [Concomitant]
     Active Substance: ALBUTEROL SULFATE
  11. SIMVASTATIN. [Concomitant]
     Active Substance: SIMVASTATIN
  12. SINGULAIR [Concomitant]
     Active Substance: MONTELUKAST SODIUM
  13. FLOVENT [Concomitant]
     Active Substance: FLUTICASONE PROPIONATE
  14. FLONASE [Concomitant]
     Active Substance: FLUTICASONE PROPIONATE
  15. VITAMIN C [Concomitant]
     Active Substance: ASCORBIC ACID
  16. KAZANO [Concomitant]
     Active Substance: ALOGLIPTIN BENZOATE\METFORMIN HYDROCHLORIDE
  17. LOSARTAN POTASSIUM. [Concomitant]
     Active Substance: LOSARTAN POTASSIUM
  18. VITAMIN D3 [Concomitant]
     Active Substance: CHOLECALCIFEROL
  19. ADVIL [Concomitant]
     Active Substance: IBUPROFEN
  20. OPSUMIT [Suspect]
     Active Substance: MACITENTAN
     Dosage: 10 MG, QD
     Route: 048
     Dates: start: 20180209
  21. PROZAC [Concomitant]
     Active Substance: FLUOXETINE HYDROCHLORIDE
  22. KLONOPIN [Concomitant]
     Active Substance: CLONAZEPAM
  23. RANITIDINE. [Concomitant]
     Active Substance: RANITIDINE
  24. HUMULIN NOS [Concomitant]
     Active Substance: INSULIN HUMAN
  25. OXYGEN. [Concomitant]
     Active Substance: OXYGEN
  26. ADVAIR HFA [Concomitant]
     Active Substance: FLUTICASONE PROPIONATE\SALMETEROL XINAFOATE
  27. CLARITIN [Concomitant]
     Active Substance: LORATADINE
  28. AMBIEN [Concomitant]
     Active Substance: ZOLPIDEM TARTRATE

REACTIONS (24)
  - Respiratory distress [Not Recovered/Not Resolved]
  - Anxiety [Unknown]
  - Oropharyngeal pain [Recovering/Resolving]
  - Bronchitis [Recovering/Resolving]
  - Laryngitis [Recovering/Resolving]
  - Back pain [Recovering/Resolving]
  - Pneumonia [Recovered/Resolved]
  - Carbon dioxide increased [Recovered/Resolved]
  - Fatigue [Recovering/Resolving]
  - Somnolence [Not Recovered/Not Resolved]
  - Headache [Not Recovered/Not Resolved]
  - Dizziness [Not Recovered/Not Resolved]
  - Nasal discharge discolouration [Recovering/Resolving]
  - Dyspnoea [Recovering/Resolving]
  - Lung disorder [Not Recovered/Not Resolved]
  - Cardiac disorder [Not Recovered/Not Resolved]
  - Bronchospasm [Recovering/Resolving]
  - Pyrexia [Recovering/Resolving]
  - Productive cough [Recovering/Resolving]
  - Pleural infection bacterial [Recovered/Resolved]
  - Chest discomfort [Recovering/Resolving]
  - Cough [Recovering/Resolving]
  - Asthma [Recovered/Resolved]
  - Haemoglobin decreased [Unknown]

NARRATIVE: CASE EVENT DATE: 20170824
